FAERS Safety Report 9237431 (Version 1)
Quarter: 2013Q2

REPORT INFORMATION
  Report Type: Spontaneous
  Country: US (occurrence: US)
  Receive Date: 20130417
  Receipt Date: 20130417
  Transmission Date: 20140414
  Serious: No
  Sender: FDA-Public Use
  Company Number: US-PFIZER INC-2013115758

PATIENT
  Sex: 0

DRUGS (3)
  1. AZITHROMYCIN [Suspect]
     Dosage: UNK
  2. TERRAMYCIN [Suspect]
     Dosage: UNK
  3. ERYTHROMYCIN [Suspect]
     Dosage: UNK

REACTIONS (1)
  - Urticaria [Unknown]
